FAERS Safety Report 18821853 (Version 2)
Quarter: 2021Q1

REPORT INFORMATION
  Report Type: Report from Study
  Country: MX (occurrence: MX)
  Receive Date: 20210202
  Receipt Date: 20210209
  Transmission Date: 20210419
  Serious: Yes (Death, Life-Threatening)
  Sender: FDA-Public Use
  Company Number: NVSC2021MX023845

PATIENT
  Age: 88 Year
  Sex: Male
  Weight: 54 kg

DRUGS (1)
  1. EXFORGE HCT [Suspect]
     Active Substance: AMLODIPINE BESYLATE\HYDROCHLOROTHIAZIDE\VALSARTAN
     Indication: BLOOD PRESSURE MEASUREMENT
     Dosage: 1 DF, QD (10/320/25 MG)
     Route: 048
     Dates: start: 20170615, end: 20200602

REACTIONS (3)
  - Seizure [Fatal]
  - Hypertension [Not Recovered/Not Resolved]
  - Hypertensive urgency [Not Recovered/Not Resolved]

NARRATIVE: CASE EVENT DATE: 20200530
